FAERS Safety Report 7765287-6 (Version None)
Quarter: 2011Q3

REPORT INFORMATION
  Report Type: 
  Country: None (occurrence: None)
  Receive Date: 20110916
  Receipt Date: 20110721
  Transmission Date: 20111222
  Serious: Yes (Hospitalization)
  Sender: FDA-Public Use
  Company Number: MC201100297

PATIENT
  Age: 46 Year
  Sex: Female
  Weight: 83 kg

DRUGS (5)
  1. ANGIOMAX [Suspect]
     Dosage: 12.5 ML, BOLUS, INTRAVENOUS, 12.5 ML, BOLUS, INTRAVENOUS
     Route: 040
     Dates: start: 20110515, end: 20110515
  2. ANGIOMAX [Suspect]
     Dosage: 12.5 ML, BOLUS, INTRAVENOUS, 12.5 ML, BOLUS, INTRAVENOUS
     Route: 040
     Dates: start: 20110515, end: 20110515
  3. ANGIOMAX [Suspect]
     Indication: PERCUTANEOUS CORONARY INTERVENTION
     Dosage: 0.75 MG/KG, BOLUS
     Route: 040
     Dates: start: 20110514, end: 20110514
  4. ANGIOMAX [Suspect]
     Dosage: 1.75 MG/KG, HR, INTRAVENOUS, 29.1 ML, HR, INTRAVENOUS
     Route: 042
     Dates: start: 20110514, end: 20110514
  5. ANGIOMAX [Suspect]
     Dosage: 1.75 MG/KG, HR, INTRAVENOUS, 29.1 ML, HR, INTRAVENOUS
     Route: 042
     Dates: start: 20110515, end: 20110515

REACTIONS (4)
  - CHEST PAIN [None]
  - ELECTROCARDIOGRAM CHANGE [None]
  - COAGULATION TIME ABNORMAL [None]
  - NO THERAPEUTIC RESPONSE [None]
